FAERS Safety Report 16728246 (Version 1)
Quarter: 2019Q3

REPORT INFORMATION
  Report Type: Spontaneous
  Country: FR (occurrence: FR)
  Receive Date: 20190822
  Receipt Date: 20190822
  Transmission Date: 20191005
  Serious: Yes (Life-Threatening)
  Sender: FDA-Public Use
  Company Number: FR-TEVA-2019-FR-1094288

PATIENT
  Age: 79 Year
  Sex: Female
  Weight: 83 kg

DRUGS (2)
  1. FUROSEMIDE. [Suspect]
     Active Substance: FUROSEMIDE
     Indication: OEDEMA
     Dates: start: 201609
  2. TEICOPLANINE [Suspect]
     Active Substance: TEICOPLANIN
     Indication: INFECTION
     Dates: start: 20160921, end: 20160929

REACTIONS (1)
  - Thrombocytopenia [Recovered/Resolved]

NARRATIVE: CASE EVENT DATE: 20160928
